FAERS Safety Report 21083321 (Version 3)
Quarter: 2022Q3

REPORT INFORMATION
  Report Type: Spontaneous
  Country: US (occurrence: US)
  Receive Date: 20220714
  Receipt Date: 20220908
  Transmission Date: 20221027
  Serious: No
  Sender: FDA-Public Use
  Company Number: US-BRISTOL-MYERS SQUIBB COMPANY-2022-074029

PATIENT
  Age: 80 Year
  Sex: Male

DRUGS (3)
  1. POMALYST [Suspect]
     Active Substance: POMALIDOMIDE
     Indication: Plasma cell myeloma
     Dosage: 1 DF : 1 CAPSULE?FREQ : FOR 7 DAYS ON, THEN 7 DAYS OFF, REPEAT CYCLE
     Route: 048
  2. POMALYST [Suspect]
     Active Substance: POMALIDOMIDE
     Dosage: FREQUENCY-TAKE 1 CAPSULE BY MOUTH EVERY DAY FOR 7 DAYS ON, THEN 7 DAYS OFF, REPEAT CYCLE.
     Route: 048
  3. POMALYST [Suspect]
     Active Substance: POMALIDOMIDE
     Dosage: 1 DF : 1 CAPSULE?EVERY DAY FOR 7 DAYS ON, THEN 7 DAYS OFF, REPEAT CYCLE
     Route: 048
     Dates: start: 20191228

REACTIONS (3)
  - Diarrhoea [Unknown]
  - White blood cell count decreased [Unknown]
  - Off label use [Unknown]
